FAERS Safety Report 13601174 (Version 6)
Quarter: 2018Q1

REPORT INFORMATION
  Report Type: Spontaneous
  Country: JP (occurrence: JP)
  Receive Date: 20170601
  Receipt Date: 20180305
  Transmission Date: 20180508
  Serious: Yes (Death, Other)
  Sender: FDA-Public Use
  Company Number: JP-009507513-1705JPN002779J

PATIENT
  Age: 55 Year
  Sex: Male
  Weight: 64 kg

DRUGS (7)
  1. PRIMPERAN [Concomitant]
     Active Substance: METOCLOPRAMIDE HYDROCHLORIDE
     Indication: NON-SMALL CELL LUNG CANCER
     Dosage: 10 MG, QD
     Route: 042
     Dates: start: 20170519, end: 20170524
  2. LACTEC [Concomitant]
     Active Substance: CALCIUM CHLORIDE ANHYDROUS\POTASSIUM CHLORIDE\SODIUM CHLORIDE\SODIUM LACTATE
     Indication: NON-SMALL CELL LUNG CANCER
     Dosage: 500 ML, QD
     Route: 042
     Dates: start: 20170520, end: 20170520
  3. SOL-MELCORT [Concomitant]
     Active Substance: METHYLPREDNISOLONE SODIUM SUCCINATE
     Indication: NON-SMALL CELL LUNG CANCER
     Dosage: 2 DF, QD
     Route: 042
     Dates: start: 20170520, end: 20170523
  4. KEYTRUDA [Suspect]
     Active Substance: PEMBROLIZUMAB
     Indication: NON-SMALL CELL LUNG CANCER
     Dosage: 200 MG, Q3W
     Route: 041
     Dates: start: 20170512, end: 20170512
  5. OXIFAST [Concomitant]
     Active Substance: OXYCODONE
     Indication: NON-SMALL CELL LUNG CANCER
     Dosage: 10 MG, QD
     Route: 042
     Dates: start: 20170522, end: 20170523
  6. OMEPRAZOLE. [Concomitant]
     Active Substance: OMEPRAZOLE
     Indication: NON-SMALL CELL LUNG CANCER
     Dosage: 20 MG, QD
     Route: 042
     Dates: start: 20170522, end: 20170524
  7. BFLUID [Concomitant]
     Active Substance: AMINO ACIDS\DEXTROSE\ELECTROLYTES NOS\VITAMINS
     Indication: NON-SMALL CELL LUNG CANCER
     Dosage: 500 ML, QD
     Route: 042
     Dates: start: 20170519, end: 20170524

REACTIONS (2)
  - Rheumatoid arthritis [Fatal]
  - Malignant neoplasm progression [Fatal]

NARRATIVE: CASE EVENT DATE: 201705
